FAERS Safety Report 5295007-9 (Version None)
Quarter: 2007Q2

REPORT INFORMATION
  Report Type: 
  Country: None (occurrence: None)
  Receive Date: 20070409
  Receipt Date: 20070409
  Transmission Date: 20071010
  Serious: Yes (Other)
  Sender: FDA-Public Use
  Company Number: None

PATIENT
  Age: 72 Year
  Sex: Male
  Weight: 123.7 kg

DRUGS (1)
  1. DOXAZOSIN MESYLATE [Suspect]

REACTIONS (1)
  - ANXIETY [None]
